FAERS Safety Report 9911510 (Version 2)
Quarter: 2014Q1

REPORT INFORMATION
  Report Type: Report from Study
  Country: BR (occurrence: BR)
  Receive Date: 20140219
  Receipt Date: 20140318
  Transmission Date: 20141002
  Serious: Yes (Death, Hospitalization, Other)
  Sender: FDA-Public Use
  Company Number: PHHY2014BR019641

PATIENT
  Sex: Male
  Weight: 72 kg

DRUGS (4)
  1. EXELON [Suspect]
     Indication: DEMENTIA ALZHEIMER^S TYPE
     Dosage: 1.5 MG, BID (1 CAPSULE IN THE MORNING AND 1CAPSULE AT NIGHT
     Dates: start: 201308
  2. EXELON [Suspect]
     Dosage: 1.5 MG, QID (2 CAPSULE IN THE MORNING AND 2CAPSULE AT NIGHT)
     Dates: start: 201308
  3. EXELON [Suspect]
     Dosage: 3 MG, UNK
  4. EXELON [Suspect]
     Dosage: 6 MG, BID
     Dates: start: 201311, end: 20131115

REACTIONS (4)
  - Infarction [Fatal]
  - Aggression [Unknown]
  - Cerebrovascular accident [Unknown]
  - Drug ineffective [Unknown]
